FAERS Safety Report 16045532 (Version 1)
Quarter: 2019Q1

REPORT INFORMATION
  Report Type: Spontaneous
  Country: GB (occurrence: GB)
  Receive Date: 20190307
  Receipt Date: 20190307
  Transmission Date: 20190418
  Serious: Yes (Congenital Anomaly)
  Sender: FDA-Public Use
  Company Number: GB-SUN PHARMACEUTICAL INDUSTRIES LTD-2019RR-200960

PATIENT
  Age: 23 Year
  Sex: Female
  Weight: 71 kg

DRUGS (1)
  1. ISOTRETINOIN. [Suspect]
     Active Substance: ISOTRETINOIN
     Indication: ACNE
     Dosage: 60 MILLIGRAM
     Route: 048
     Dates: start: 20181114, end: 20190206

REACTIONS (1)
  - Maternal exposure during pregnancy [Unknown]
